FAERS Safety Report 8570370-1 (Version None)
Quarter: 2012Q3

REPORT INFORMATION
  Report Type: 
  Country: None (occurrence: None)
  Receive Date: 20120803
  Receipt Date: 20120724
  Transmission Date: 20120928
  Serious: Yes (Hospitalization)
  Sender: FDA-Public Use
  Company Number: US-ELI_LILLY_AND_COMPANY-US201207007691

PATIENT
  Sex: Female

DRUGS (4)
  1. BYETTA [Suspect]
     Indication: DIABETES MELLITUS
     Dosage: 10 UG, UNK
     Route: 058
     Dates: start: 20080101
  2. FLUCONAZOLE [Concomitant]
     Indication: FUNGAL INFECTION
     Dosage: UNK, BID
  3. METFORMIN HYDROCHLORIDE [Concomitant]
     Indication: DIABETES MELLITUS
     Dosage: UNK
  4. BYETTA [Suspect]
     Dosage: 10 UG, UNK
     Route: 058
     Dates: start: 20120701

REACTIONS (6)
  - NEPHROLITHIASIS [None]
  - BLOOD GLUCOSE DECREASED [None]
  - INSOMNIA [None]
  - FEELING JITTERY [None]
  - NAUSEA [None]
  - BLOOD GLUCOSE FLUCTUATION [None]
